FAERS Safety Report 25159288 (Version 2)
Quarter: 2025Q2

REPORT INFORMATION
  Report Type: Report from Study
  Country: US (occurrence: US)
  Receive Date: 20250404
  Receipt Date: 20250415
  Transmission Date: 20250717
  Serious: Yes (Other)
  Sender: JOHNSON AND JOHNSON
  Company Number: US-JNJFOC-20250404494

PATIENT

DRUGS (1)
  1. SPRAVATO [Suspect]
     Active Substance: ESKETAMINE
     Indication: Depression
     Route: 045

REACTIONS (5)
  - Drug abuse [Unknown]
  - Emotional disorder [Unknown]
  - Drug ineffective [Unknown]
  - Product dose omission issue [Unknown]
  - Drug diversion [Unknown]
